FAERS Safety Report 13395935 (Version 3)
Quarter: 2018Q3

REPORT INFORMATION
  Report Type: Spontaneous
  Country: US (occurrence: US)
  Receive Date: 20170403
  Receipt Date: 20180705
  Transmission Date: 20181010
  Serious: Yes (Other)
  Sender: FDA-Public Use
  Company Number: PHEH2017US008651

PATIENT
  Sex: Male

DRUGS (1)
  1. COSENTYX [Suspect]
     Active Substance: SECUKINUMAB
     Indication: PSORIASIS
     Dosage: 300 MG, QMO
     Route: 058
     Dates: start: 20150826, end: 20160810

REACTIONS (8)
  - Lymphadenopathy mediastinal [Unknown]
  - Abdominal lymphadenopathy [Unknown]
  - Weight decreased [Unknown]
  - B-cell small lymphocytic lymphoma [Unknown]
  - Retroperitoneal lymphadenopathy [Unknown]
  - Lymphadenopathy [Unknown]
  - Fatigue [Unknown]
  - Chronic lymphocytic leukaemia [Unknown]
